FAERS Safety Report 12242577 (Version 1)
Quarter: 2016Q2

REPORT INFORMATION
  Report Type: Spontaneous
  Country: FR (occurrence: FR)
  Receive Date: 20160406
  Receipt Date: 20160406
  Transmission Date: 20160815
  Serious: Yes (Hospitalization)
  Sender: FDA-Public Use
  Company Number: FR-PFIZER INC-2016185664

PATIENT
  Age: 69 Year
  Sex: Male

DRUGS (2)
  1. TAHOR [Suspect]
     Active Substance: ATORVASTATIN CALCIUM
     Dosage: UNK
     Dates: end: 20090724
  2. KERLONE [Suspect]
     Active Substance: BETAXOLOL HYDROCHLORIDE
     Dosage: UNK
     Dates: end: 20090911

REACTIONS (2)
  - Interstitial lung disease [Unknown]
  - Pulmonary fibrosis [Unknown]

NARRATIVE: CASE EVENT DATE: 200907
